FAERS Safety Report 11874351 (Version 1)
Quarter: 2015Q4

REPORT INFORMATION
  Report Type: Spontaneous
  Country: CA (occurrence: CA)
  Receive Date: 20151229
  Receipt Date: 20151229
  Transmission Date: 20160305
  Serious: Yes (Hospitalization, Other)
  Sender: FDA-Public Use
  Company Number: CA-JNJFOC-20151216686

PATIENT
  Age: 3 Year
  Sex: Female
  Weight: 18.14 kg

DRUGS (1)
  1. CHILDRENS TYLENOL [Suspect]
     Active Substance: ACETAMINOPHEN
     Indication: ACCIDENTAL EXPOSURE TO PRODUCT
     Dosage: HALF THE BOTTLE
     Route: 048
     Dates: start: 20151216, end: 20151216

REACTIONS (3)
  - Accidental exposure to product by child [Unknown]
  - Failure of child resistant mechanism for pharmaceutical product [None]
  - Product packaging issue [Unknown]

NARRATIVE: CASE EVENT DATE: 20151216
